FAERS Safety Report 11499736 (Version 1)
Quarter: 2015Q3

REPORT INFORMATION
  Report Type: Spontaneous
  Country: US (occurrence: None)
  Receive Date: 20150910
  Receipt Date: 20150910
  Transmission Date: 20151125
  Serious: Yes (Disabling)
  Sender: FDA-Public Use
  Company Number: None

PATIENT
  Age: 55 Year
  Sex: Female
  Weight: 108.86 kg

DRUGS (6)
  1. GUMMY VITAMIN [Concomitant]
  2. LEFLUNOMIDE. [Suspect]
     Active Substance: LEFLUNOMIDE
     Indication: RHEUMATOID ARTHRITIS
     Dosage: 30 TABS 1-TAB 1-DAY BY MOUTH
     Route: 048
     Dates: start: 20150601, end: 20150730
  3. MELOXICAM. [Concomitant]
     Active Substance: MELOXICAM
  4. ALBUTEROL. [Concomitant]
     Active Substance: ALBUTEROL
  5. SYNTHROID [Concomitant]
     Active Substance: LEVOTHYROXINE SODIUM
  6. NEBULIZER [Concomitant]
     Active Substance: DEVICE

REACTIONS (13)
  - Nausea [None]
  - Decreased appetite [None]
  - Chills [None]
  - Dizziness [None]
  - Chromaturia [None]
  - Somnolence [None]
  - Yellow skin [None]
  - Ocular icterus [None]
  - Weight decreased [None]
  - Pyrexia [None]
  - Eye discharge [None]
  - Lymphadenopathy [None]
  - Malaise [None]

NARRATIVE: CASE EVENT DATE: 20150730
